FAERS Safety Report 18434762 (Version 1)
Quarter: 2020Q4

REPORT INFORMATION
  Report Type: Report from Study
  Country: US (occurrence: US)
  Receive Date: 20201028
  Receipt Date: 20201028
  Transmission Date: 20210114
  Serious: Yes (Other)
  Sender: FDA-Public Use
  Company Number: US-GILEAD-2020-0501326

PATIENT
  Sex: Female

DRUGS (1)
  1. AMBRISENTAN [Suspect]
     Active Substance: AMBRISENTAN
     Indication: PRODUCT USED FOR UNKNOWN INDICATION
     Dosage: 5 MG
     Route: 065

REACTIONS (9)
  - Blindness [Unknown]
  - Oxygen saturation decreased [Unknown]
  - Dizziness [Unknown]
  - Malaise [Unknown]
  - Fall [Unknown]
  - Gait inability [Unknown]
  - Dyspnoea [Unknown]
  - Peripheral swelling [Unknown]
  - Amnesia [Unknown]
